FAERS Safety Report 5788713-0 (Version None)
Quarter: 2008Q2

REPORT INFORMATION
  Report Type: 
  Country: None (occurrence: None)
  Receive Date: 20080626
  Receipt Date: 20080623
  Transmission Date: 20081010
  Serious: Yes (Hospitalization)
  Sender: FDA-Public Use
  Company Number: DE-WYE-G01739308

PATIENT
  Sex: Female

DRUGS (9)
  1. TREVILOR [Suspect]
     Dosage: OVERDOSE AMOUNT 450 MG
     Route: 048
     Dates: start: 20080621, end: 20080621
  2. DELIX PLUS [Suspect]
     Dosage: 2 TABLETS (OVERDOSE AMOUNT 10 MG RAMIPRIL AND 50 MG HYDROCHLOROTHIAZIDE)
     Route: 048
     Dates: start: 20080621, end: 20080621
  3. LEVOTHYROXINE SODIUM [Suspect]
     Dosage: 2 TABLETS (OVERDOSE AMOUNT UNKNOWN)
     Route: 048
     Dates: start: 20080621, end: 20080621
  4. ZOPICLONE [Suspect]
     Dosage: 2 TABLETS (OVERDOSE AMOUNT 7.5 MG)
     Route: 048
     Dates: start: 20080621, end: 20080621
  5. NOVONORM [Suspect]
     Dosage: 8 TABLETS (OVERDOSE AMOUNT UNKNOWN)
     Route: 048
     Dates: start: 20080621, end: 20080621
  6. PANTOPRAZOLE SODIUM [Suspect]
     Dosage: OVERDOSE AMOUNT UNKNOWN
     Route: 048
     Dates: start: 20080621, end: 20080621
  7. RISPERDAL [Suspect]
     Dosage: 1 TABLET (OVERDOSE AMOUNT 1MG)
     Route: 048
     Dates: start: 20080621, end: 20080621
  8. ASPIRIN [Suspect]
     Dosage: 2 TABLETS (OVERDOSE AMOUNT 200 MG)
     Route: 048
     Dates: start: 20080621, end: 20080621
  9. METFORMIN HCL [Suspect]
     Dosage: OVERDOSE AMOUNT UNKNOWN
     Route: 048
     Dates: start: 20080621, end: 20080621

REACTIONS (2)
  - INTENTIONAL OVERDOSE [None]
  - SUICIDE ATTEMPT [None]
